FAERS Safety Report 10353379 (Version 4)
Quarter: 2014Q4

REPORT INFORMATION
  Report Type: Spontaneous
  Country: SE (occurrence: SE)
  Receive Date: 20140731
  Receipt Date: 20141014
  Transmission Date: 20150528
  Serious: Yes (Other)
  Sender: FDA-Public Use
  Company Number: SE-AMGEN-SWESP2014049392

PATIENT
  Age: 74 Year
  Sex: Female
  Weight: 72 kg

DRUGS (5)
  1. LEVAXIN [Concomitant]
     Active Substance: LEVOTHYROXINE SODIUM
     Indication: HYPOTHYROIDISM
     Dosage: 25 MUG, QD
     Route: 048
  2. PANODIL [Concomitant]
     Active Substance: ACETAMINOPHEN
     Indication: PAIN
     Dosage: 500 MG, 1-2 AS NEEDED
     Route: 048
  3. MOVICOL [Concomitant]
     Active Substance: POLYETHYLENE GLYCOL 3350\POTASSIUM CHLORIDE\SODIUM BICARBONATE\SODIUM CHLORIDE
  4. KALCIPOS-D [Concomitant]
     Active Substance: CALCIUM CARBONATE\CHOLECALCIFEROL
     Indication: OSTEOPOROSIS
     Dosage: 500 MG (400 IU), BID
     Route: 048
  5. PROLIA [Suspect]
     Active Substance: DENOSUMAB
     Indication: OSTEOPOROSIS
     Dosage: 60 MG, Q6MO
     Route: 058
     Dates: start: 20140516

REACTIONS (16)
  - Intervertebral disc protrusion [Unknown]
  - Paraesthesia [Recovered/Resolved]
  - Diverticulum intestinal [Unknown]
  - Gait disturbance [Unknown]
  - Arthralgia [Unknown]
  - Oral pain [Unknown]
  - Back pain [Unknown]
  - Sciatica [Unknown]
  - Sleep disorder [Unknown]
  - Nephrolithiasis [Unknown]
  - Pain [Unknown]
  - Pruritus [Recovered/Resolved]
  - Bone pain [Unknown]
  - Pain in extremity [Unknown]
  - Renal impairment [Unknown]
  - Spinal osteoarthritis [Unknown]

NARRATIVE: CASE EVENT DATE: 20140516
